FAERS Safety Report 22289257 (Version 1)
Quarter: 2023Q2

REPORT INFORMATION
  Report Type: Spontaneous
  Country: US (occurrence: None)
  Receive Date: 20230504
  Receipt Date: 20230504
  Transmission Date: 20230721
  Serious: Yes (Hospitalization)
  Sender: FDA-Public Use
  Company Number: None

PATIENT
  Age: 74 Year
  Sex: Female
  Weight: 54.45 kg

DRUGS (1)
  1. SPRYCEL [Suspect]
     Active Substance: DASATINIB
     Dates: start: 20221116, end: 20230411

REACTIONS (3)
  - Dyspnoea [None]
  - Wheezing [None]
  - Pleural effusion [None]

NARRATIVE: CASE EVENT DATE: 20230411
